FAERS Safety Report 8070995-6 (Version None)
Quarter: 2012Q1

REPORT INFORMATION
  Report Type: 
  Country: None (occurrence: None)
  Receive Date: 20120125
  Receipt Date: 20120116
  Transmission Date: 20120608
  Serious: Yes (Hospitalization, Other)
  Sender: FDA-Public Use
  Company Number: CHPA2012US000948

PATIENT
  Age: 57 Year
  Sex: Female

DRUGS (1)
  1. EXCEDRIN EXTRA STRENGTH TABLETS [Suspect]
     Indication: ARTHRALGIA
     Dosage: 1 DF, SEVERAL TIMES PER DAY
     Route: 048
     Dates: end: 20111201

REACTIONS (9)
  - INTERVERTEBRAL DISC DEGENERATION [None]
  - HEADACHE [None]
  - ARTHRITIS [None]
  - RED BLOOD CELL SEDIMENTATION RATE INCREASED [None]
  - PAIN [None]
  - DRUG EFFECT DECREASED [None]
  - INCORRECT DRUG ADMINISTRATION DURATION [None]
  - UNDERDOSE [None]
  - ABDOMINAL PAIN [None]
